FAERS Safety Report 17600058 (Version 1)
Quarter: 2020Q1

REPORT INFORMATION
  Report Type: Spontaneous
  Country: HU (occurrence: HU)
  Receive Date: 20200330
  Receipt Date: 20200330
  Transmission Date: 20200409
  Serious: Yes (Other)
  Sender: FDA-Public Use
  Company Number: HU-PFIZER INC-2020127424

PATIENT
  Age: 63 Year
  Sex: Male

DRUGS (5)
  1. DIFLUCAN [Interacting]
     Active Substance: FLUCONAZOLE
     Dosage: 50 MILLIGRAM, DAILY;
     Route: 048
     Dates: start: 20200302, end: 20200303
  2. ALFUZOSIN [Concomitant]
     Active Substance: ALFUZOSIN
     Indication: PROSTATIC DISORDER
     Dosage: UNK
  3. DIFLUCAN [Suspect]
     Active Substance: FLUCONAZOLE
     Indication: ORAL FUNGAL INFECTION
     Dosage: 50 MILLIGRAM, DAILY;
     Route: 048
     Dates: start: 20200228, end: 20200229
  4. IRBESARTAN TEVA [Interacting]
     Active Substance: IRBESARTAN
     Indication: HYPERTENSION
     Dosage: 150 MILLIGRAM DAILY (ONE IN THE EVENING)
     Route: 048
     Dates: start: 2019
  5. QUAMATEL [Concomitant]
     Active Substance: FAMOTIDINE
     Indication: HYPERCHLORHYDRIA
     Dosage: UNK

REACTIONS (2)
  - Drug interaction [Unknown]
  - Blood pressure systolic increased [Recovered/Resolved]

NARRATIVE: CASE EVENT DATE: 20200229
